FAERS Safety Report 12012232 (Version 2)
Quarter: 2016Q1

REPORT INFORMATION
  Report Type: Spontaneous
  Country: AU (occurrence: AU)
  Receive Date: 20160205
  Receipt Date: 20160306
  Transmission Date: 20160526
  Serious: Yes (Other)
  Sender: FDA-Public Use
  Company Number: AU-ELI_LILLY_AND_COMPANY-AU201601008238

PATIENT
  Age: 28 Year
  Sex: Male

DRUGS (1)
  1. ZYPREXA RELPREVV [Suspect]
     Active Substance: OLANZAPINE PAMOATE
     Indication: SCHIZOPHRENIA
     Dosage: 300 MG, MONTHLY (1/M)
     Route: 030
     Dates: start: 201510

REACTIONS (9)
  - Sedation [Recovered/Resolved]
  - Dizziness [Unknown]
  - Dysarthria [Unknown]
  - Asthenia [Unknown]
  - Oxygen saturation decreased [Recovered/Resolved]
  - Lethargy [Recovered/Resolved]
  - Asthenia [Unknown]
  - Hypertension [Recovered/Resolved]
  - Fatigue [Unknown]

NARRATIVE: CASE EVENT DATE: 20160118
